FAERS Safety Report 24321000 (Version 1)
Quarter: 2024Q3

REPORT INFORMATION
  Report Type: Spontaneous
  Country: US (occurrence: US)
  Receive Date: 20240915
  Receipt Date: 20240915
  Transmission Date: 20241017
  Serious: No
  Sender: BEIGENE
  Company Number: US-BEIGENE-BGN-2024-009671

PATIENT

DRUGS (2)
  1. BRUKINSA [Interacting]
     Active Substance: ZANUBRUTINIB
     Indication: Waldenstrom^s macroglobulinaemia
     Dosage: 160 MILLIGRAM, BID
     Route: 048
     Dates: start: 2023
  2. OXYCODONE [Interacting]
     Active Substance: OXYCODONE
     Dosage: 10 MILLIGRAM, QID

REACTIONS (2)
  - Blood glucose increased [Not Recovered/Not Resolved]
  - Drug interaction [Unknown]

NARRATIVE: CASE EVENT DATE: 20240501
